FAERS Safety Report 5870673-5 (Version None)
Quarter: 2008Q3

REPORT INFORMATION
  Report Type: 
  Country: None (occurrence: None)
  Receive Date: 20080904
  Receipt Date: 20080902
  Transmission Date: 20090109
  Serious: Yes (Death, Hospitalization)
  Sender: FDA-Public Use
  Company Number: PHHY2008IE20026

PATIENT
  Age: 57 Year
  Sex: Male

DRUGS (5)
  1. DIOVAN [Suspect]
     Dosage: 80 MG, UNK
     Route: 048
  2. TOLVON [Concomitant]
  3. XANAX [Concomitant]
     Dosage: 0.2 MG, BID
  4. LIPITOR [Concomitant]
  5. NEXIUM [Concomitant]

REACTIONS (2)
  - BASILAR ARTERY THROMBOSIS [None]
  - STRESS [None]
